FAERS Safety Report 9028301 (Version 1)
Quarter: 2013Q1

REPORT INFORMATION
  Report Type: Spontaneous
  Country: US (occurrence: None)
  Receive Date: 20130115
  Receipt Date: 20130115
  Transmission Date: 20140127
  Serious: Yes (Life-Threatening)
  Sender: FDA-Public Use
  Company Number: None

PATIENT
  Age: 66 Year
  Sex: Female
  Weight: 68.95 kg

DRUGS (2)
  1. LEVOFLOXACIN [Suspect]
     Indication: PNEUMONIA
     Dosage: 500 MG 1 X DAY TON 1 SIDE 12 OTHER
     Dates: start: 20121229
  2. LEVOFLOXACIN [Suspect]
     Indication: URINARY TRACT INFECTION
     Dosage: 500 MG 1 X DAY TON 1 SIDE 12 OTHER
     Dates: start: 20121229

REACTIONS (5)
  - Chest pain [None]
  - Cough [None]
  - Tremor [None]
  - Nausea [None]
  - Insomnia [None]
